FAERS Safety Report 7996811-6 (Version None)
Quarter: 2011Q4

REPORT INFORMATION
  Report Type: 
  Country: None (occurrence: None)
  Receive Date: 20111221
  Receipt Date: 20111212
  Transmission Date: 20120403
  Serious: Yes (Other)
  Sender: FDA-Public Use
  Company Number: JP-JNJFOC-20111207086

PATIENT
  Age: 9 Decade
  Sex: Female

DRUGS (2)
  1. AMBISOME [Concomitant]
     Route: 041
  2. ITRACONAZOLE [Suspect]
     Indication: ASPERGILLOSIS
     Route: 048
     Dates: end: 20111001

REACTIONS (1)
  - HEPATITIS B [None]
